FAERS Safety Report 16725018 (Version 1)
Quarter: 2019Q3

REPORT INFORMATION
  Report Type: Spontaneous
  Country: US (occurrence: US)
  Receive Date: 20190704
  Receipt Date: 20190704
  Transmission Date: 20191005
  Serious: No
  Sender: FDA-Public Use
  Company Number: None

PATIENT
  Age: 62 Year
  Sex: Female
  Weight: 30.66 kg

DRUGS (1)
  1. VALSARTAN. [Suspect]
     Active Substance: VALSARTAN
     Indication: CARDIAC FAILURE CONGESTIVE
     Route: 048
     Dates: start: 20180827, end: 20180928

REACTIONS (5)
  - Influenza like illness [None]
  - Bronchitis [None]
  - Fatigue [None]
  - Chills [None]
  - Chest discomfort [None]

NARRATIVE: CASE EVENT DATE: 20180928
